FAERS Safety Report 19026256 (Version 8)
Quarter: 2022Q1

REPORT INFORMATION
  Report Type: Spontaneous
  Country: DK (occurrence: GB)
  Receive Date: 20210318
  Receipt Date: 20220203
  Transmission Date: 20220423
  Serious: Yes (Death, Life-Threatening, Hospitalization, Disabling, Other)
  Sender: FDA-Public Use
  Company Number: None

PATIENT
  Age: 5 Year
  Sex: Male
  Weight: 18 kg

DRUGS (38)
  1. CEFUROXIME AXETIL [Suspect]
     Active Substance: CEFUROXIME AXETIL
     Indication: Antibiotic therapy
     Dosage: UNK
     Route: 042
  2. CIPROFLOXACIN [Suspect]
     Active Substance: CIPROFLOXACIN
     Indication: Product used for unknown indication
     Dosage: UNK
     Route: 065
  3. AMOXICILLIN\CLAVULANATE POTASSIUM [Suspect]
     Active Substance: AMOXICILLIN\CLAVULANATE POTASSIUM
     Indication: Pneumonia
     Dosage: UNK
     Route: 065
     Dates: start: 20160714, end: 20160720
  4. AMOXICILLIN\CLAVULANATE POTASSIUM [Suspect]
     Active Substance: AMOXICILLIN\CLAVULANATE POTASSIUM
     Dosage: UNK
     Route: 065
     Dates: start: 20150611
  5. PIPERACILLIN SODIUM\TAZOBACTAM SODIUM [Suspect]
     Active Substance: PIPERACILLIN SODIUM\TAZOBACTAM SODIUM
     Indication: Respiratory arrest
     Dosage: UNK
     Route: 065
  6. PIPERACILLIN SODIUM\TAZOBACTAM SODIUM [Suspect]
     Active Substance: PIPERACILLIN SODIUM\TAZOBACTAM SODIUM
     Indication: Vomiting
  7. AMOXICILLIN [Suspect]
     Active Substance: AMOXICILLIN
     Indication: Product used for unknown indication
     Dosage: UNK
     Route: 065
  8. PENICILLIN G [Suspect]
     Active Substance: PENICILLIN G
     Indication: Product used for unknown indication
     Dosage: UNK
     Route: 065
  9. FENTANYL [Suspect]
     Active Substance: FENTANYL
     Indication: Product used for unknown indication
     Dosage: UNK
     Route: 065
  10. GENTAMICIN [Suspect]
     Active Substance: GENTAMICIN
     Indication: Antibiotic therapy
     Dosage: UNK
     Route: 042
  11. DEXTROSE [Suspect]
     Active Substance: DEXTROSE
     Indication: Pneumonia
     Dosage: UNK
     Route: 065
  12. M-M-RVAXPRO [Suspect]
     Active Substance: MEASLES VIRUS STRAIN ENDERS^ ATTENUATED EDMONSTON LIVE ANTIGEN\MUMPS VIRUS STRAIN B LEVEL JERYL LYNN
     Indication: Pneumococcal sepsis
     Dosage: UNK
     Route: 065
  13. M-M-RVAXPRO [Suspect]
     Active Substance: MEASLES VIRUS STRAIN ENDERS^ ATTENUATED EDMONSTON LIVE ANTIGEN\MUMPS VIRUS STRAIN B LEVEL JERYL LYNN
     Indication: Immunisation
  14. MEROPENEM [Suspect]
     Active Substance: MEROPENEM
     Indication: Antibiotic therapy
     Dosage: UNK
     Route: 065
  15. MUMPS VIRUS VACCINE LIVE NOS [Suspect]
     Active Substance: MUMPS VIRUS STRAIN B LEVEL JERYL LYNN LIVE ANTIGEN
     Indication: Pneumococcal sepsis
     Dosage: UNK
     Route: 065
  16. PENICILLIN V [Suspect]
     Active Substance: PENICILLIN V
     Indication: Antibiotic therapy
     Dosage: UNK
     Route: 065
  17. POTASSIUM CHLORIDE [Suspect]
     Active Substance: POTASSIUM CHLORIDE
     Indication: Pneumonia
     Dosage: UNK
     Route: 065
  18. POTASSIUM CHLORIDE [Suspect]
     Active Substance: POTASSIUM CHLORIDE
     Dosage: UNK
     Route: 065
  19. PROPOFOL [Suspect]
     Active Substance: PROPOFOL
     Indication: Product used for unknown indication
     Dosage: UNK
     Route: 065
  20. PULMOZYME [Suspect]
     Active Substance: DORNASE ALFA
     Indication: Interstitial lung disease
     Dosage: UNK
     Route: 065
  21. RUBELLA VIRUS VACCINE LIVE NOS [Suspect]
     Active Substance: RUBELLA VIRUS STRAIN WISTAR RA 27/3 LIVE ANTIGEN
     Indication: Pneumococcal sepsis
     Dosage: UNK
     Route: 065
  22. SODIUM CHLORIDE [Suspect]
     Active Substance: SODIUM CHLORIDE
     Indication: Pneumonia
     Dosage: UNK
     Route: 065
  23. SODIUM CHLORIDE [Suspect]
     Active Substance: SODIUM CHLORIDE
     Dosage: UNK
     Route: 065
  24. TRISODIUM CITRATE DIHYDRATE [Suspect]
     Active Substance: TRISODIUM CITRATE DIHYDRATE
     Indication: Pneumonia
     Dosage: UNK
     Route: 065
  25. TRISODIUM CITRATE DIHYDRATE [Suspect]
     Active Substance: TRISODIUM CITRATE DIHYDRATE
     Route: 065
  26. VENTOLIN [Suspect]
     Active Substance: ALBUTEROL SULFATE
     Indication: Product used for unknown indication
     Dosage: UNK
     Route: 065
  27. FENTANYL [Suspect]
     Active Substance: FENTANYL
     Indication: Pneumococcal infection
     Dosage: UNK
     Route: 065
  28. FENTANYL [Suspect]
     Active Substance: FENTANYL
     Indication: Circulatory collapse
  29. FENTANYL [Suspect]
     Active Substance: FENTANYL
     Indication: Brain injury
  30. FENTANYL [Suspect]
     Active Substance: FENTANYL
     Indication: Cerebral ischaemia
  31. FENTANYL [Suspect]
     Active Substance: FENTANYL
     Indication: Pneumonia
  32. FENTANYL [Suspect]
     Active Substance: FENTANYL
     Indication: Intestinal ischaemia
  33. FENTANYL [Suspect]
     Active Substance: FENTANYL
     Indication: Respiratory tract infection
  34. FENTANYL [Suspect]
     Active Substance: FENTANYL
     Indication: Interstitial lung disease
  35. FENTANYL [Suspect]
     Active Substance: FENTANYL
     Indication: Pneumonia aspiration
  36. DORNASE ALFA [Suspect]
     Active Substance: DORNASE ALFA
     Indication: Interstitial lung disease
     Dosage: UNK
     Route: 065
  37. CLAVULANATE POTASSIUM [Suspect]
     Active Substance: CLAVULANATE POTASSIUM
     Indication: Product used for unknown indication
     Dosage: UNK
     Route: 065
  38. ALBUTEROL [Suspect]
     Active Substance: ALBUTEROL
     Indication: Product used for unknown indication
     Dosage: UNK
     Route: 065

REACTIONS (46)
  - Intestinal ischaemia [Fatal]
  - Cerebral ischaemia [Fatal]
  - Brain injury [Fatal]
  - Circulatory collapse [Fatal]
  - Pneumonia [Fatal]
  - Diarrhoea [Fatal]
  - Dehydration [Fatal]
  - Muscular weakness [Fatal]
  - Pneumonia aspiration [Fatal]
  - Respiratory tract infection bacterial [Unknown]
  - Interstitial lung disease [Unknown]
  - Pneumococcal sepsis [Fatal]
  - Respiratory arrest [Fatal]
  - Disease complication [Not Recovered/Not Resolved]
  - Spinal muscular atrophy [Unknown]
  - Tachypnoea [Unknown]
  - Dysphagia [Unknown]
  - Metabolic disorder [Unknown]
  - Motor dysfunction [Unknown]
  - Injury [Unknown]
  - Sputum increased [Unknown]
  - Atelectasis [Recovering/Resolving]
  - Chest X-ray abnormal [Unknown]
  - Increased bronchial secretion [Unknown]
  - Lung consolidation [Unknown]
  - Condition aggravated [Unknown]
  - Inflammation [Unknown]
  - Resuscitation [Unknown]
  - Pyrexia [Unknown]
  - Vomiting [Unknown]
  - Dyspnoea [Unknown]
  - Malaise [Unknown]
  - Ischaemic cerebral infarction [Fatal]
  - Stoma closure [Fatal]
  - Demyelination [Fatal]
  - Ascites [Fatal]
  - Motor neurone disease [Fatal]
  - Brain injury [Fatal]
  - Atelectasis [Fatal]
  - Muscle atrophy [Fatal]
  - Bronchial disorder [Fatal]
  - Scoliosis [Fatal]
  - Inflammation [Fatal]
  - Spinal muscular atrophy [Fatal]
  - Lung infiltration [Fatal]
  - Lymphadenectomy [Fatal]

NARRATIVE: CASE EVENT DATE: 20160620
